FAERS Safety Report 20385289 (Version 1)
Quarter: 2022Q1

REPORT INFORMATION
  Report Type: Report from Study
  Country: GB (occurrence: None)
  Receive Date: 20220127
  Receipt Date: 20220127
  Transmission Date: 20220423
  Serious: Yes (Other)
  Sender: FDA-Public Use
  Company Number: GB-Merck Healthcare KGaA-9288793

PATIENT
  Age: 39 Year
  Sex: Female

DRUGS (2)
  1. MAVENCLAD [Suspect]
     Active Substance: CLADRIBINE
     Indication: Multiple sclerosis
     Dosage: YEAR ONE WEEK ONE THERAPY: ONE TABLET ON DAYS 1 TO 5
     Route: 048
     Dates: start: 20211122
  2. MAVENCLAD [Suspect]
     Active Substance: CLADRIBINE
     Dosage: YEAR ONE WEEK TWO THERAPY: ONE TABLET ON DAYS 1 TO 5
     Route: 048
     Dates: start: 20211221

REACTIONS (12)
  - White blood cell count decreased [Unknown]
  - Multiple sclerosis relapse [Unknown]
  - Blood glucose decreased [Unknown]
  - Headache [Unknown]
  - Insomnia [Unknown]
  - Crying [Unknown]
  - Malaise [Unknown]
  - Nausea [Unknown]
  - Feeling hot [Unknown]
  - Chills [Unknown]
  - Chest pain [Unknown]
  - Emotional distress [Unknown]

NARRATIVE: CASE EVENT DATE: 20210101
